FAERS Safety Report 5742040-6 (Version None)
Quarter: 2008Q2

REPORT INFORMATION
  Report Type: 
  Country: None (occurrence: None)
  Receive Date: 20080515
  Receipt Date: 20080502
  Transmission Date: 20081010
  Serious: Yes (Hospitalization)
  Sender: FDA-Public Use
  Company Number: 234171J08USA

PATIENT
  Age: 55 Year
  Sex: Female

DRUGS (2)
  1. REBIF [Suspect]
     Indication: MULTIPLE SCLEROSIS
     Dosage: 44 MCG, 3 IN 1 WEEKS, SUBCUTANEOUS
     Route: 058
     Dates: start: 20071002, end: 20080408
  2. BOTOX (BOTULINUM TOXIN TYPE A) [Concomitant]

REACTIONS (6)
  - ABNORMAL SLEEP-RELATED EVENT [None]
  - DISEASE RECURRENCE [None]
  - DRUG DEPENDENCE [None]
  - LOSS OF CONSCIOUSNESS [None]
  - NARCOLEPSY [None]
  - THINKING ABNORMAL [None]
